FAERS Safety Report 12459835 (Version 1)
Quarter: 2016Q2

REPORT INFORMATION
  Report Type: Spontaneous
  Country: US (occurrence: US)
  Receive Date: 20160613
  Receipt Date: 20160613
  Transmission Date: 20160815
  Serious: Yes (Other)
  Sender: FDA-Public Use
  Company Number: US-PFIZER INC-2016287245

PATIENT
  Age: 63 Year
  Sex: Female

DRUGS (16)
  1. LEFLUNOMIDE. [Concomitant]
     Active Substance: LEFLUNOMIDE
     Dosage: UNK
  2. FOLIC ACID. [Concomitant]
     Active Substance: FOLIC ACID
  3. CALCIUM [Concomitant]
     Active Substance: CALCIUM
     Dosage: UNK
  4. LYRICA [Concomitant]
     Active Substance: PREGABALIN
     Dosage: UNK
  5. MAGNESIUM [Concomitant]
     Active Substance: MAGNESIUM
     Dosage: UNK
  6. TOPIRAMATE. [Concomitant]
     Active Substance: TOPIRAMATE
     Dosage: UNK
  7. TYLENOL ARTHRITIS PAIN [Concomitant]
     Active Substance: ACETAMINOPHEN
     Dosage: UNK
  8. KCL [Concomitant]
     Active Substance: POTASSIUM CHLORIDE
     Dosage: UNK
  9. FE [Concomitant]
     Active Substance: IRON
     Dosage: UNK
  10. VITAMIN B COMPLEX [Concomitant]
     Active Substance: CYANOCOBALAMIN\DEXPANTHENOL\NIACINAMIDE\PYRIDOXINE HYDROCHLORIDE\RIBOFLAVIN 5^-PHOSPHATE SODIUM\THIAMINE HYDROCHLORIDE\VITAMIN B COMPLEX
     Dosage: UNK
  11. VITAMIN D [Concomitant]
     Active Substance: CHOLECALCIFEROL
     Dosage: UNK
  12. VITAMIN C [Concomitant]
     Active Substance: ASCORBIC ACID
     Dosage: UNK
  13. XELJANZ [Suspect]
     Active Substance: TOFACITINIB CITRATE
     Indication: RHEUMATOID ARTHRITIS
     Dosage: 5 MG, 2X/DAY
     Route: 048
     Dates: start: 201511
  14. XELJANZ [Suspect]
     Active Substance: TOFACITINIB CITRATE
     Dosage: 5 MG, 1X/DAY
     Route: 048
  15. ZINC [Concomitant]
     Active Substance: ZINC\ZINC CHLORIDE
     Dosage: UNK
  16. ZETIA [Concomitant]
     Active Substance: EZETIMIBE
     Dosage: UNK

REACTIONS (3)
  - Condition aggravated [Recovered/Resolved]
  - Intentional product misuse [Unknown]
  - Abscess [Recovered/Resolved]
